FAERS Safety Report 21284855 (Version 2)
Quarter: 2022Q3

REPORT INFORMATION
  Report Type: Report from Study
  Country: DE (occurrence: None)
  Receive Date: 20220902
  Receipt Date: 20220923
  Transmission Date: 20221027
  Serious: Yes (Hospitalization)
  Sender: FDA-Public Use
  Company Number: DE-ROCHE-3171094

PATIENT
  Age: 60 Year
  Sex: Male
  Weight: 73 kg

DRUGS (1)
  1. ATEZOLIZUMAB [Suspect]
     Active Substance: ATEZOLIZUMAB
     Indication: Small cell lung cancer extensive stage
     Dosage: LAST DOSE WAS GIVEN BEFORE ONSATE OF EVENT ON 04/AUG/2022, CYCLE 6
     Route: 041
     Dates: start: 20220420

REACTIONS (1)
  - Acute kidney injury [Not Recovered/Not Resolved]

NARRATIVE: CASE EVENT DATE: 20220819
